FAERS Safety Report 7098462-7 (Version None)
Quarter: 2010Q4

REPORT INFORMATION
  Report Type: 
  Country: None (occurrence: None)
  Receive Date: 20101112
  Receipt Date: 20101104
  Transmission Date: 20110411
  Serious: Yes (Hospitalization, Other)
  Sender: FDA-Public Use
  Company Number: GB-US-EMD SERONO, INC.-7022510

PATIENT
  Sex: Female

DRUGS (5)
  1. REBIF [Suspect]
     Indication: PRODUCT USED FOR UNKNOWN INDICATION
     Dates: start: 20101004, end: 20101008
  2. VENLAFLAXIN [Concomitant]
     Route: 048
  3. MODAFINIL [Concomitant]
     Route: 048
     Dates: start: 20100920
  4. BACLOFEN [Concomitant]
     Route: 048
  5. CARBAMAZEPINE [Concomitant]
     Route: 048
     Dates: start: 20100811

REACTIONS (5)
  - ALANINE AMINOTRANSFERASE INCREASED [None]
  - GAMMA-GLUTAMYLTRANSFERASE INCREASED [None]
  - HYPERHIDROSIS [None]
  - MIGRAINE [None]
  - VOMITING [None]
